FAERS Safety Report 18331242 (Version 1)
Quarter: 2020Q3

REPORT INFORMATION
  Report Type: Spontaneous
  Country: US (occurrence: US)
  Receive Date: 20200930
  Receipt Date: 20200930
  Transmission Date: 20201103
  Serious: Yes (Death, Hospitalization)
  Sender: FDA-Public Use
  Company Number: US-MYLANLABS-2020M1083631

PATIENT
  Age: 64 Year
  Sex: Male
  Weight: 92.8 kg

DRUGS (12)
  1. NOREPINEPHRINE. [Suspect]
     Active Substance: NOREPINEPHRINE
     Dosage: 0.2 MICROG /KG/MIN
  2. METHYLENE BLUE. [Suspect]
     Active Substance: METHYLENE BLUE
     Indication: SHOCK
     Dosage: 100 MILLIGRAM
     Route: 065
  3. NOREPINEPHRINE. [Suspect]
     Active Substance: NOREPINEPHRINE
     Dosage: 0.02 MICROG/KG/MIN
  4. VASOPRESSIN. [Suspect]
     Active Substance: VASOPRESSIN
     Indication: SHOCK
     Dosage: DOSE: 0.04 U/MIN
     Route: 065
  5. EPINEPHRINE. [Suspect]
     Active Substance: EPINEPHRINE
     Indication: SHOCK
     Dosage: 0.05 MICROG/KG/MIN
     Route: 065
  6. HYDROCORTISONE. [Suspect]
     Active Substance: HYDROCORTISONE
     Indication: SHOCK
     Dosage: STRESS DOSE
     Route: 065
  7. NOREPINEPHRINE. [Suspect]
     Active Substance: NOREPINEPHRINE
     Indication: SHOCK
     Dosage: 0.15 MICROG/KG/MIN
  8. EPINEPHRINE. [Suspect]
     Active Substance: EPINEPHRINE
     Dosage: 0.06 MICROG/KG/MIN
     Route: 065
  9. HYDROXOCOBALAMIN [Suspect]
     Active Substance: HYDROXOCOBALAMIN
     Indication: SHOCK
     Dosage: 5 GRAM
     Route: 042
  10. VASOPRESSIN. [Suspect]
     Active Substance: VASOPRESSIN
     Dosage: DOSE: 0.03 U/MIN
     Route: 065
  11. ASCORBIC ACID. [Suspect]
     Active Substance: ASCORBIC ACID
     Indication: SHOCK
     Dosage: 1.5 GRAM, Q6H
     Route: 042
  12. NOREPINEPHRINE. [Suspect]
     Active Substance: NOREPINEPHRINE
     Dosage: 0.08 MICROG/KG/MIN

REACTIONS (2)
  - Off label use [Unknown]
  - Drug ineffective [Fatal]
